FAERS Safety Report 10183497 (Version 3)
Quarter: 2014Q2

REPORT INFORMATION
  Report Type: Spontaneous
  Country: JP (occurrence: JP)
  Receive Date: 20140520
  Receipt Date: 20140620
  Transmission Date: 20141212
  Serious: Yes (Death, Other)
  Sender: FDA-Public Use
  Company Number: JP-ABBVIE-13P-087-1072896-00

PATIENT
  Age: 64 Year
  Sex: Female

DRUGS (2)
  1. ADALIMUMAB [Suspect]
     Indication: PRODUCT USED FOR UNKNOWN INDICATION
  2. METHOTREXATE [Suspect]
     Indication: RHEUMATOID ARTHRITIS

REACTIONS (4)
  - Interventricular septum rupture [Fatal]
  - Platelet count decreased [Unknown]
  - Acute myocardial infarction [Unknown]
  - Lupus-like syndrome [Unknown]
